FAERS Safety Report 21914549 (Version 1)
Quarter: 2023Q1

REPORT INFORMATION
  Report Type: Spontaneous
  Country: BE (occurrence: BE)
  Receive Date: 20230126
  Receipt Date: 20230126
  Transmission Date: 20230417
  Serious: Yes (Disabling)
  Sender: FDA-Public Use
  Company Number: None

PATIENT
  Age: 47 Year
  Sex: Female
  Weight: 68 kg

DRUGS (4)
  1. AZITHROMYCIN [Suspect]
     Active Substance: AZITHROMYCIN
     Indication: Gastrointestinal infection
     Dosage: ONCE PER DAY 1 TABLET BEFORE SUPPER (3 TOTAL)
     Route: 048
     Dates: start: 20230110, end: 20230112
  2. SACCHAROMYCES CEREVISIAE [Concomitant]
     Active Substance: SACCHAROMYCES CEREVISIAE
     Dosage: 1 CAPSULE DURING BREAKFAST AND 1 AT DINNER, DAY 1 AND DAY 2
     Dates: start: 20230110, end: 20230111
  3. ANTIMETIL [Concomitant]
     Dosage: 1 DF, 3X/DAY, DAY 1 AND DAY 2
  4. GELATIN [Concomitant]
     Active Substance: GELATIN
     Dosage: 1 DF, 4X/DAY, DAY 2

REACTIONS (6)
  - Somnolence [Recovering/Resolving]
  - Paraesthesia [Recovering/Resolving]
  - Coordination abnormal [Recovering/Resolving]
  - Taste disorder [Recovering/Resolving]
  - Hypoaesthesia [Recovering/Resolving]
  - Fatigue [Recovering/Resolving]

NARRATIVE: CASE EVENT DATE: 20230111
